FAERS Safety Report 5743782-9 (Version None)
Quarter: 2008Q2

REPORT INFORMATION
  Report Type: 
  Country: None (occurrence: None)
  Receive Date: 20080516
  Receipt Date: 20080516
  Transmission Date: 20081010
  Serious: No
  Sender: FDA-Public Use
  Company Number: None

PATIENT
  Sex: Female
  Weight: 115 kg

DRUGS (4)
  1. CYTARABINE [Suspect]
     Dosage: 1582 MG
     Dates: end: 20080428
  2. DAUNORUBICIN HCL [Suspect]
     Dosage: 600 MG
     Dates: end: 20080424
  3. ETOPOSIDE [Suspect]
     Dosage: 678 MG
     Dates: end: 20080424
  4. VORICONAZOLE [Concomitant]

REACTIONS (6)
  - ACUTE RESPIRATORY DISTRESS SYNDROME [None]
  - ALANINE AMINOTRANSFERASE ABNORMAL [None]
  - ANURIA [None]
  - ASPARTATE AMINOTRANSFERASE ABNORMAL [None]
  - BLOOD CREATININE ABNORMAL [None]
  - LUNG INFECTION [None]
